FAERS Safety Report 5781131-0 (Version None)
Quarter: 2008Q2

REPORT INFORMATION
  Report Type: 
  Country: None (occurrence: None)
  Receive Date: 20080618
  Receipt Date: 20080604
  Transmission Date: 20081010
  Serious: Yes (Hospitalization)
  Sender: FDA-Public Use
  Company Number: RENA-1000135

PATIENT
  Age: 70 Year
  Sex: Male

DRUGS (1)
  1. RENAGEL [Suspect]
     Indication: HYPERPHOSPHATAEMIA
     Dosage: 0.8 G, TID, ORAL
     Route: 048
     Dates: start: 20080530, end: 20080601

REACTIONS (3)
  - ANGINA PECTORIS [None]
  - PRURITUS [None]
  - URTICARIA [None]
